FAERS Safety Report 24890457 (Version 1)
Quarter: 2025Q1

REPORT INFORMATION
  Report Type: Report from Study
  Country: US (occurrence: US)
  Receive Date: 20250127
  Receipt Date: 20250127
  Transmission Date: 20250408
  Serious: Yes (Other)
  Sender: SPECGX
  Company Number: US-SPECGX-T202402488

PATIENT
  Sex: Female

DRUGS (5)
  1. MORPHINE [Suspect]
     Active Substance: MORPHINE
     Indication: Pain
     Route: 065
     Dates: start: 2015, end: 2015
  2. CORTICOTROPIN [Suspect]
     Active Substance: CORTICOTROPIN
     Indication: Rheumatoid arthritis
     Route: 065
     Dates: start: 20240712
  3. CORTICOTROPIN [Suspect]
     Active Substance: CORTICOTROPIN
     Indication: Osteoporosis
  4. MORPHINE [Suspect]
     Active Substance: MORPHINE
     Indication: Pain
     Route: 065
  5. BOTOX [Suspect]
     Active Substance: ONABOTULINUMTOXINA
     Indication: Product used for unknown indication
     Route: 065

REACTIONS (15)
  - Foot operation [Unknown]
  - Bronchitis [Unknown]
  - Nodule [Recovering/Resolving]
  - Fall [Unknown]
  - Head injury [Unknown]
  - Blood urine present [Unknown]
  - Weight increased [Unknown]
  - Joint injury [Unknown]
  - Buttock injury [Unknown]
  - Pain [Unknown]
  - Eating disorder symptom [Unknown]
  - Somnolence [Recovering/Resolving]
  - Feeling abnormal [Unknown]
  - Fatigue [Unknown]
  - Vomiting [Unknown]

NARRATIVE: CASE EVENT DATE: 20150101
